FAERS Safety Report 7590671-3 (Version None)
Quarter: 2011Q3

REPORT INFORMATION
  Report Type: 
  Country: None (occurrence: None)
  Receive Date: 20110705
  Receipt Date: 20110630
  Transmission Date: 20111222
  Serious: Yes (Death, Hospitalization)
  Sender: FDA-Public Use
  Company Number: PHHY2011RU57913

PATIENT
  Age: 71 Year
  Sex: Male

DRUGS (3)
  1. KETOPROFEN [Suspect]
     Indication: OSTEOCHONDROSIS
     Route: 061
  2. MELOXICAM [Concomitant]
     Route: 048
  3. DICLOFENAC SODIUM [Concomitant]

REACTIONS (4)
  - DECREASED APPETITE [None]
  - JAUNDICE [None]
  - DEATH [None]
  - ASTHENIA [None]
